FAERS Safety Report 8240391-7 (Version None)
Quarter: 2012Q1

REPORT INFORMATION
  Report Type: 
  Country: None (occurrence: None)
  Receive Date: 20120328
  Receipt Date: 20120326
  Transmission Date: 20120608
  Serious: Yes (Other)
  Sender: FDA-Public Use
  Company Number: US-TEVA-324347USA

PATIENT
  Sex: Male

DRUGS (6)
  1. DAPSONE [Suspect]
  2. INSULIN [Concomitant]
  3. LORAZEPAM [Concomitant]
  4. CETIRIZINE HYDROCHLORIDE [Concomitant]
  5. RANITIDINE HCL [Concomitant]
  6. CLARAVIS [Suspect]

REACTIONS (3)
  - PANCREATITIS [None]
  - HAEMOLYTIC ANAEMIA [None]
  - HEPATIC FAILURE [None]
